FAERS Safety Report 5221067-7 (Version None)
Quarter: 2007Q1

REPORT INFORMATION
  Report Type: 
  Country: None (occurrence: None)
  Receive Date: 20070124
  Receipt Date: 20070108
  Transmission Date: 20070707
  Serious: Yes (Death)
  Sender: FDA-Public Use
  Company Number: 234702

PATIENT
  Age: 45 Year
  Sex: Female
  Weight: 101 kg

DRUGS (1)
  1. BEVACIZUMAB(BEVACIZUMAB) PWDR + SOLVENT,INFUSION SOLN, 100MG [Suspect]
     Indication: GLIOBLASTOMA
     Dosage: 15 MG/KG, Q3W, INTRAVENOUS
     Route: 042
     Dates: start: 20061103, end: 20061213

REACTIONS (1)
  - DISEASE PROGRESSION [None]
